FAERS Safety Report 25085412 (Version 2)
Quarter: 2025Q1

REPORT INFORMATION
  Report Type: Spontaneous
  Country: JP (occurrence: JP)
  Receive Date: 20250317
  Receipt Date: 20250331
  Transmission Date: 20250408
  Serious: Yes (Other)
  Sender: MERCK SHARP & DOHME LLC
  Company Number: JP-009507513-2263489

PATIENT
  Age: 6 Decade
  Sex: Female

DRUGS (1)
  1. KEYTRUDA [Suspect]
     Active Substance: PEMBROLIZUMAB
     Indication: Cervix carcinoma recurrent
     Dosage: 200 MG ? 1/3 WEEKS(10 CYCLES)
     Route: 041

REACTIONS (5)
  - Interstitial lung disease [Recovering/Resolving]
  - Pneumomediastinum [Unknown]
  - Pneumothorax [Unknown]
  - Subcutaneous emphysema [Unknown]
  - Herpes zoster [Recovering/Resolving]
